FAERS Safety Report 14858566 (Version 1)
Quarter: 2018Q2

REPORT INFORMATION
  Report Type: Spontaneous
  Country: US (occurrence: US)
  Receive Date: 20180421
  Receipt Date: 20180421
  Transmission Date: 20180711
  Serious: Yes (Other)
  Sender: FDA-Public Use
  Company Number: None

PATIENT
  Age: 36 Year
  Sex: Male
  Weight: 81 kg

DRUGS (1)
  1. ALPRAZOLAM ER 3MG [Suspect]
     Active Substance: ALPRAZOLAM
     Indication: PANIC ATTACK

REACTIONS (4)
  - Product substitution issue [None]
  - Injury [None]
  - Vomiting [None]
  - Drug ineffective [None]

NARRATIVE: CASE EVENT DATE: 20170406
